FAERS Safety Report 5216952-6 (Version None)
Quarter: 2007Q1

REPORT INFORMATION
  Report Type: 
  Country: None (occurrence: None)
  Receive Date: 20070119
  Receipt Date: 20070105
  Transmission Date: 20070707
  Serious: Yes (Other)
  Sender: FDA-Public Use
  Company Number: 07-000073

PATIENT
  Age: 22 Year
  Sex: Female

DRUGS (6)
  1. PHENAZOPYRIDINE HCL TAB [Suspect]
     Indication: DYSURIA
     Dosage: 200 MD, TID - SEE IMAGE
     Dates: start: 19600101
  2. PHENAZOPYRIDINE HCL TAB [Suspect]
     Indication: DYSURIA
     Dosage: 200 MD, TID - SEE IMAGE
     Dates: start: 19690101
  3. PHENAZOPYRIDINE HCL TAB [Suspect]
     Indication: DYSURIA
     Dosage: 200 MD, TID - SEE IMAGE
     Dates: start: 19750101
  4. PENICILLIN [Concomitant]
  5. SULFISOXAZOLE [Concomitant]
  6. AMPICILLIN [Concomitant]

REACTIONS (14)
  - CHEST DISCOMFORT [None]
  - DIARRHOEA [None]
  - DYSPEPSIA [None]
  - DYSURIA [None]
  - EPIGASTRIC DISCOMFORT [None]
  - HAEMOGLOBIN DECREASED [None]
  - HEPATITIS TOXIC [None]
  - HEPATOCELLULAR DAMAGE [None]
  - HEPATOMEGALY [None]
  - HYPERSENSITIVITY [None]
  - MALAISE [None]
  - NAUSEA [None]
  - PYREXIA [None]
  - RED BLOOD CELL SEDIMENTATION RATE INCREASED [None]
